FAERS Safety Report 5187065-7 (Version None)
Quarter: 2006Q4

REPORT INFORMATION
  Report Type: 
  Country: None (occurrence: None)
  Receive Date: 20061214
  Receipt Date: 20061201
  Transmission Date: 20070319
  Serious: Yes (Other)
  Sender: FDA-Public Use
  Company Number: 2006129992

PATIENT
  Age: 15 Month
  Sex: Female
  Weight: 8.5 kg

DRUGS (4)
  1. GENOTROPIN [Suspect]
     Indication: GROWTH HORMONE DEFICIENCY
     Dosage: SEE IMAGE
     Route: 058
     Dates: start: 20060123, end: 20060201
  2. GENOTROPIN [Suspect]
     Indication: GROWTH HORMONE DEFICIENCY
     Dosage: SEE IMAGE
     Route: 058
     Dates: start: 20060502, end: 20060704
  3. PROPULSID [Concomitant]
  4. OMEPRAZOLE [Concomitant]

REACTIONS (5)
  - CARDIAC MURMUR [None]
  - HYPERTHERMIA [None]
  - HYPERTRICHOSIS [None]
  - HYPERTROPHIC CARDIOMYOPATHY [None]
  - VIRAL INFECTION [None]
